FAERS Safety Report 5038304-4 (Version None)
Quarter: 2006Q2

REPORT INFORMATION
  Report Type: 
  Country: None (occurrence: None)
  Receive Date: 20060601
  Receipt Date: 20060123
  Transmission Date: 20061013
  Serious: No
  Sender: FDA-Public Use
  Company Number: 2006PV007565

PATIENT
  Age: 30 Year
  Sex: Female
  Weight: 131.9967 kg

DRUGS (4)
  1. BYETTA [Suspect]
     Indication: WEIGHT DECREASED
     Dosage: SEE IMAGE
     Route: 058
     Dates: start: 20051209, end: 20060108
  2. BYETTA [Suspect]
     Indication: WEIGHT DECREASED
     Dosage: SEE IMAGE
     Route: 058
     Dates: start: 20060109
  3. ZYPREXA [Concomitant]
  4. SEROQUEL [Concomitant]

REACTIONS (4)
  - INJECTION SITE IRRITATION [None]
  - INJECTION SITE URTICARIA [None]
  - THERAPEUTIC RESPONSE UNEXPECTED [None]
  - WEIGHT DECREASED [None]
